FAERS Safety Report 21163339 (Version 2)
Quarter: 2022Q3

REPORT INFORMATION
  Report Type: Spontaneous
  Country: US (occurrence: US)
  Receive Date: 20220802
  Receipt Date: 20220829
  Transmission Date: 20221027
  Serious: No
  Sender: FDA-Public Use
  Company Number: US-TEVA-2022-US-2061748

PATIENT
  Age: 80 Year
  Sex: Male

DRUGS (1)
  1. PIOGLITAZONE [Suspect]
     Active Substance: PIOGLITAZONE
     Indication: Type 2 diabetes mellitus
     Route: 065
     Dates: end: 2022

REACTIONS (3)
  - Mobility decreased [Recovering/Resolving]
  - Arthralgia [Unknown]
  - Myalgia [Recovered/Resolved]
